FAERS Safety Report 24727816 (Version 2)
Quarter: 2024Q4

REPORT INFORMATION
  Report Type: Report from Study
  Country: US (occurrence: US)
  Receive Date: 20241212
  Receipt Date: 20241224
  Transmission Date: 20250114
  Serious: Yes (Death, Other)
  Sender: UCB
  Company Number: US-UCBSA-2024063791

PATIENT
  Sex: Female
  Weight: 55.329 kg

DRUGS (2)
  1. ROZANOLIXIZUMAB [Suspect]
     Active Substance: ROZANOLIXIZUMAB
     Indication: Myasthenia gravis
     Dosage: 560 MILLIGRAM, WEEKLY (QW) FOR SIX WEEKS, CYCLE 3
     Route: 058
     Dates: start: 20240829
  2. ROZANOLIXIZUMAB [Suspect]
     Active Substance: ROZANOLIXIZUMAB
     Dosage: 560 MILLIGRAM, WEEKLY (QW) FOR SIX WEEKS, CYCLE 3
     Route: 058
     Dates: start: 20241017, end: 20241107

REACTIONS (5)
  - Death [Fatal]
  - Diverticulitis [Not Recovered/Not Resolved]
  - Clostridium difficile infection [Unknown]
  - Colonic abscess [Not Recovered/Not Resolved]
  - Urinary tract infection [Recovered/Resolved]

NARRATIVE: CASE EVENT DATE: 20240101
